FAERS Safety Report 19084681 (Version 1)
Quarter: 2021Q2

REPORT INFORMATION
  Report Type: Spontaneous
  Country: GB (occurrence: GB)
  Receive Date: 20210401
  Receipt Date: 20210401
  Transmission Date: 20210717
  Serious: Yes (Hospitalization, Disabling, Other)
  Sender: FDA-Public Use
  Company Number: GB-ORGANON-O2103GBR003197

PATIENT
  Age: 14 Year
  Sex: Female
  Weight: 56 kg

DRUGS (1)
  1. NEXPLANON [Suspect]
     Active Substance: ETONOGESTREL
     Indication: CONTRACEPTION
     Dosage: UNK
     Route: 051
     Dates: start: 20200107

REACTIONS (1)
  - Suicidal behaviour [Not Recovered/Not Resolved]

NARRATIVE: CASE EVENT DATE: 20200210
